FAERS Safety Report 5957668-8 (Version None)
Quarter: 2008Q4

REPORT INFORMATION
  Report Type: 
  Country: None (occurrence: None)
  Receive Date: 20081119
  Receipt Date: 20081112
  Transmission Date: 20090506
  Serious: Yes (Hospitalization)
  Sender: FDA-Public Use
  Company Number: FR-JNJFOC-20081102820

PATIENT
  Age: 74 Year
  Sex: Male

DRUGS (21)
  1. OFLOCET [Suspect]
     Indication: PYREXIA
     Route: 042
  2. TRISENOX [Suspect]
     Indication: ACUTE PROMYELOCYTIC LEUKAEMIA
     Route: 042
  3. ZAVEDOS [Suspect]
     Indication: ACUTE PROMYELOCYTIC LEUKAEMIA
     Dosage: 5 DAYS/3 DAYS
     Route: 042
  4. GRANOCYTE [Suspect]
     Indication: ACUTE PROMYELOCYTIC LEUKAEMIA
     Route: 042
  5. ZOPHREN [Suspect]
     Indication: PROPHYLAXIS OF NAUSEA AND VOMITING
     Route: 042
  6. ROCEPHIN [Suspect]
     Indication: PYREXIA
     Route: 042
  7. VESANOID [Concomitant]
     Indication: ACUTE PROMYELOCYTIC LEUKAEMIA
     Route: 042
  8. SOLU-MEDROL [Concomitant]
     Indication: HYPOXIA
     Route: 050
  9. SOLU-MEDROL [Concomitant]
     Indication: DYSPNOEA
     Route: 050
  10. BRICANY [Concomitant]
     Indication: HYPOXIA
     Route: 055
  11. BRICANY [Concomitant]
     Indication: DYSPNOEA
     Route: 055
  12. PLAVIX [Concomitant]
     Route: 065
  13. AMLOD [Concomitant]
     Route: 065
  14. TEMERIT [Concomitant]
     Route: 065
  15. OMEPRAZOLE [Concomitant]
     Route: 065
  16. ZOLPIDEM [Concomitant]
     Route: 065
  17. PRIMPERAN [Concomitant]
     Route: 065
  18. ACUPAN [Concomitant]
     Route: 065
  19. LOVENOX [Concomitant]
     Indication: PULMONARY EMBOLISM
     Route: 065
  20. INIPOMP [Concomitant]
     Route: 065
  21. SOLUPRED [Concomitant]
     Route: 048

REACTIONS (6)
  - INTERSTITIAL LUNG DISEASE [None]
  - PANCYTOPENIA [None]
  - PERICARDIAL EFFUSION [None]
  - PULMONARY EMBOLISM [None]
  - PYREXIA [None]
  - SEPSIS [None]
